FAERS Safety Report 12899092 (Version 1)
Quarter: 2016Q4

REPORT INFORMATION
  Report Type: Spontaneous
  Country: AU (occurrence: AU)
  Receive Date: 20161101
  Receipt Date: 20161101
  Transmission Date: 20170207
  Serious: Yes (Other)
  Sender: FDA-Public Use
  Company Number: AU-STRIDES ARCOLAB LIMITED-2016SP016711

PATIENT

DRUGS (1)
  1. IBUPROFEN. [Suspect]
     Active Substance: IBUPROFEN
     Indication: BACK PAIN
     Dosage: UNK

REACTIONS (10)
  - Nausea [Unknown]
  - Duodenal stenosis [Unknown]
  - Hypophagia [Unknown]
  - Weight decreased [Unknown]
  - Malnutrition [Unknown]
  - Duodenal ulcer [Unknown]
  - Dehydration [Unknown]
  - Hypovolaemia [Unknown]
  - Iron deficiency anaemia [Unknown]
  - Vomiting [Unknown]
